FAERS Safety Report 7436018-4 (Version None)
Quarter: 2011Q2

REPORT INFORMATION
  Report Type: 
  Country: None (occurrence: None)
  Receive Date: 20110425
  Receipt Date: 20080311
  Transmission Date: 20111010
  Serious: Yes (Death, Other)
  Sender: FDA-Public Use
  Company Number: US-BAYER-200816859NA

PATIENT
  Age: 6 Day
  Sex: Male
  Weight: 16.28 kg

DRUGS (30)
  1. PANCURONIUM BROMIDE [Concomitant]
     Dosage: UNK
     Route: 042
     Dates: start: 20000606, end: 20000606
  2. SEVOFLURANE [Concomitant]
     Dosage: UNK
     Route: 042
     Dates: start: 20000606, end: 20000606
  3. TRASYLOL [Suspect]
     Dosage: 10,000 KIU (LOADING DOSE)
     Route: 042
     Dates: start: 20000607, end: 20000607
  4. DOPAMINE HCL [Concomitant]
     Dosage: UNK
     Route: 042
     Dates: start: 20000606, end: 20000614
  5. DOBUTAMINE HCL [Concomitant]
     Dosage: UNK
     Route: 042
     Dates: start: 20000606, end: 20000610
  6. PANTHENOL [PANTHENOL] [Concomitant]
     Dosage: UNK
     Route: 042
     Dates: start: 20000606, end: 20000606
  7. TRASYLOL [Suspect]
     Indication: SYSTEMIC-PULMONARY ARTERY SHUNT
     Dosage: 10 ML (LOADING DOSE)
     Route: 042
     Dates: start: 20000216, end: 20000216
  8. TRASYLOL [Suspect]
     Indication: TRICUSPID VALVE REPAIR
     Dosage: 2.2 ML/HR (INFUSION DRIP)
     Route: 042
     Dates: start: 20000216, end: 20000216
  9. TRASYLOL [Suspect]
     Dosage: 463,050 KIU PER CADIOPULMONARY BYPASS
     Dates: start: 20000606, end: 20000606
  10. FEOSOL [Concomitant]
     Dosage: 15 MG, QD
  11. ANCEF [Concomitant]
     Dosage: 155 MG, UNK
     Route: 042
     Dates: start: 20000606, end: 20000611
  12. TRASYLOL [Suspect]
     Dosage: 303,700 KIU PER CARDIOPULMONARY BYPASS
     Route: 042
     Dates: start: 20000216, end: 20000216
  13. TRASYLOL [Suspect]
     Dosage: 10 ML/HR (INFUSION DRIP)
     Route: 042
     Dates: start: 20000606, end: 20000606
  14. ACETYLSALICYLIC ACID SRT [Concomitant]
     Dosage: 40 MG, QD
  15. NIPRIDE [Concomitant]
     Dosage: UNK
     Route: 042
     Dates: start: 20000606, end: 20000608
  16. FENTANYL [Concomitant]
     Dosage: UNK
     Route: 042
     Dates: start: 20000216
  17. DOPAMINE HCL [Concomitant]
     Dosage: UNK
     Route: 042
     Dates: start: 20000216
  18. ANCEF [Concomitant]
     Dosage: 65 MG, UNK
     Route: 042
     Dates: start: 20000216
  19. VERSED [Concomitant]
     Dosage: UNK
     Route: 042
     Dates: start: 20000606, end: 20000606
  20. BENADRYL [Concomitant]
     Dosage: 5 MG, UNK
     Route: 042
     Dates: start: 20000606, end: 20000606
  21. CAPTOPRIL [Concomitant]
     Dosage: 5 MG, TID
  22. LASIX [Concomitant]
     Dosage: 3 MG, TID
  23. AMIODARONE [Concomitant]
     Dosage: UNK
     Route: 042
     Dates: start: 20000606, end: 20000613
  24. ZANTAC [Concomitant]
     Dosage: 8 MG, UNK
     Route: 042
     Dates: start: 20000606
  25. OPTIRAY [IODINE,IOVERSOL] [Concomitant]
     Dosage: 4 ML, UNK
     Dates: start: 20000518
  26. HEPARIN [Concomitant]
     Dosage: UNK
     Route: 042
     Dates: start: 20000606, end: 20000614
  27. RED BLOOD CELLS, CONCENTRATED [Concomitant]
     Dosage: 2 U, UNK
     Dates: start: 20000216
  28. TRASYLOL [Suspect]
     Indication: NORWOOD PROCEDURE
     Dosage: 10,000 KIU (INITIAL DOSE)
     Route: 042
     Dates: start: 20000216, end: 20000216
  29. DIGOXIN [Concomitant]
     Dosage: 25 MCG BID
  30. PROTAMINE SULFATE [Concomitant]
     Dosage: 25 MG, UNK
     Route: 042
     Dates: start: 20000606, end: 20000606

REACTIONS (10)
  - ACTIVITIES OF DAILY LIVING IMPAIRED [None]
  - RENAL FAILURE [None]
  - ANHEDONIA [None]
  - INJURY [None]
  - PAIN [None]
  - ANXIETY [None]
  - UNEVALUABLE EVENT [None]
  - RENAL INJURY [None]
  - EMOTIONAL DISTRESS [None]
  - GENERAL PHYSICAL HEALTH DETERIORATION [None]
